FAERS Safety Report 14341522 (Version 2)
Quarter: 2018Q2

REPORT INFORMATION
  Report Type: Spontaneous
  Country: FR (occurrence: FR)
  Receive Date: 20180102
  Receipt Date: 20180508
  Transmission Date: 20180711
  Serious: Yes (Other)
  Sender: FDA-Public Use
  Company Number: FR-MERCK KGAA-2038116

PATIENT
  Age: 53 Year
  Sex: Female
  Weight: 72 kg

DRUGS (3)
  1. LEVOTHYROXINE SODIUM. [Suspect]
     Active Substance: LEVOTHYROXINE SODIUM
     Dates: start: 20170903
  2. LEVOTHYROXINE SODIUM. [Suspect]
     Active Substance: LEVOTHYROXINE SODIUM
     Route: 048
     Dates: start: 20170903, end: 20170919
  3. NOVOTHYROX [Suspect]
     Active Substance: LEVOTHYROXINE SODIUM
     Indication: POST PROCEDURAL HYPOTHYROIDISM
     Route: 048
     Dates: start: 2017, end: 2017

REACTIONS (29)
  - Somnolence [None]
  - Sleep disorder [None]
  - Headache [None]
  - Nausea [None]
  - Pain in extremity [None]
  - Heart rate increased [None]
  - Muscle spasms [None]
  - Influenza like illness [None]
  - Pain [None]
  - Dyspepsia [None]
  - Emotional distress [None]
  - Blood thyroid stimulating hormone increased [None]
  - Arthralgia [None]
  - Fatigue [None]
  - Narcolepsy [None]
  - Impaired work ability [None]
  - Alopecia [None]
  - Diffuse alopecia [None]
  - Diarrhoea [None]
  - Vomiting [None]
  - Decreased interest [None]
  - Dysphonia [None]
  - Musculoskeletal pain [None]
  - Loss of personal independence in daily activities [None]
  - Amnesia [None]
  - Gastrointestinal disorder [None]
  - Nervousness [None]
  - Blood thyroid stimulating hormone decreased [None]
  - Dysphagia [None]

NARRATIVE: CASE EVENT DATE: 201708
